FAERS Safety Report 5251998-3 (Version None)
Quarter: 2007Q1

REPORT INFORMATION
  Report Type: 
  Country: None (occurrence: None)
  Receive Date: 20070226
  Receipt Date: 20070212
  Transmission Date: 20070707
  Serious: Yes (Death, Hospitalization, Disabling)
  Sender: FDA-Public Use
  Company Number: AMI0000958

PATIENT
  Age: 77 Year
  Sex: Female

DRUGS (2)
  1. PENACILLAMINE [Suspect]
     Indication: HEPATO-LENTICULAR DEGENERATION
     Dosage: 900 MG PO TID
     Route: 048
  2. ZINC [Suspect]
     Indication: HEPATO-LENTICULAR DEGENERATION
     Dosage: 150 MG PO TID
     Route: 048

REACTIONS (6)
  - CARDIO-RESPIRATORY ARREST [None]
  - CONDITION AGGRAVATED [None]
  - DYSTONIA [None]
  - NEUROLOGICAL SYMPTOM [None]
  - PARKINSONISM [None]
  - URINE COPPER INCREASED [None]
